FAERS Safety Report 18255102 (Version 1)
Quarter: 2020Q3

REPORT INFORMATION
  Report Type: Report from Study
  Country: US (occurrence: US)
  Receive Date: 20200910
  Receipt Date: 20200910
  Transmission Date: 20201103
  Serious: Yes (Hospitalization)
  Sender: FDA-Public Use
  Company Number: US-JNJFOC-A-US2018-181890

PATIENT
  Age: 87 Year
  Sex: Female
  Weight: 106.69 kg

DRUGS (7)
  1. ELIQUIS [Concomitant]
     Active Substance: APIXABAN
  2. AMLODIPINE [Concomitant]
     Active Substance: AMLODIPINE BESYLATE
  3. OPSUMIT [Suspect]
     Active Substance: MACITENTAN
     Dosage: 10 MG, QD
     Route: 048
     Dates: start: 20181108
  4. OXYGEN. [Concomitant]
     Active Substance: OXYGEN
  5. OPSUMIT [Suspect]
     Active Substance: MACITENTAN
     Dosage: 10 MG, QD
     Route: 048
     Dates: start: 201810
  6. OPSUMIT [Suspect]
     Active Substance: MACITENTAN
     Indication: PULMONARY ARTERIAL HYPERTENSION
     Dosage: 10 MG, QD
     Route: 048
  7. SILDENAFIL CITRATE. [Concomitant]
     Active Substance: SILDENAFIL CITRATE

REACTIONS (17)
  - Oxygen saturation decreased [Unknown]
  - Cough [Unknown]
  - Product dose omission issue [Recovered/Resolved]
  - Dizziness [Unknown]
  - Oedema peripheral [Unknown]
  - Weight increased [Unknown]
  - Nocturnal dyspnoea [Unknown]
  - Pericardial effusion [Unknown]
  - Abdominal discomfort [Recovered/Resolved]
  - Pneumonia [Unknown]
  - Nasal congestion [Unknown]
  - Chest pain [Unknown]
  - Exercise tolerance decreased [Unknown]
  - Heart rate increased [Not Recovered/Not Resolved]
  - Dyspnoea [Unknown]
  - Gallbladder disorder [Unknown]
  - Fluid retention [Not Recovered/Not Resolved]

NARRATIVE: CASE EVENT DATE: 201810
